FAERS Safety Report 8819371 (Version 2)
Quarter: 2012Q4

REPORT INFORMATION
  Report Type: Spontaneous
  Country: US (occurrence: None)
  Receive Date: 20121003
  Receipt Date: 20121116
  Transmission Date: 20130627
  Serious: Yes (Death, Hospitalization)
  Sender: FDA-Public Use
  Company Number: 2012-505

PATIENT
  Age: 49 Year
  Sex: Male

DRUGS (19)
  1. FAZACLO [Suspect]
     Dosage: 100-600 mg, qd, oral
     Route: 048
     Dates: start: 20051129, end: 20120913
  2. ACETAMINOPHEN (PARACETAMOL),ACETYLSAL ACID,CAFFEINE CITRATE [Concomitant]
  3. BENZTROPINE MESILATE (BENZATROPINE MESILATE) [Concomitant]
  4. DIGOXIN (DIGOXIN) [Concomitant]
  5. DIVALPROEX SODIUM (VALPROATE SEMISODIUM) [Concomitant]
  6. GUAIFENESIN DM (DEXTROMETHORPHAN HYDROBROMIDE) [Concomitant]
  7. HALOPERIDOL (HALOPERIDOL) [Concomitant]
  8. IBUPROFEN (IBUPROFEN) [Concomitant]
  9. LACTULOSE (LACTULOSE) [Concomitant]
  10. LORAZEPAM [Concomitant]
  11. MAALOX (ALUMINIUM HYDROXIDE GEL, MAGNESIUM HYDROXIDE) [Concomitant]
  12. MILK OF MAGNESIA (MAGNESIUM HYDROXIDE) [Concomitant]
  13. OMEPRAZOLE (OMEPRAZOLE) [Concomitant]
  14. POTASSIUM CHLORIDE (POTASSIUM CHLORIDE) [Concomitant]
  15. SOLIFENACIN SUCCINATE (SOLIFENACIN SUCCINATE) [Concomitant]
  16. SPIRONOLACTONE (SPIRONOLACTONE) [Concomitant]
  17. TRAZODONE HCL (TRAZODONE HYDROCHLORIDE) [Concomitant]
  18. COUMADIN (WARFARIN SODIUM) [Concomitant]
  19. FLUTICASONE (FLUTICASONE PROPIONATE) [Concomitant]

REACTIONS (2)
  - Cyanosis [None]
  - Unresponsive to stimuli [None]
